FAERS Safety Report 24815041 (Version 2)
Quarter: 2025Q1

REPORT INFORMATION
  Report Type: Spontaneous
  Country: BE (occurrence: BE)
  Receive Date: 20250107
  Receipt Date: 20250227
  Transmission Date: 20250408
  Serious: Yes (Other)
  Sender: PFIZER
  Company Number: BE-PFIZER INC-PV202400167708

PATIENT
  Age: 68 Year
  Weight: 110 kg

DRUGS (2)
  1. ELREXFIO [Suspect]
     Active Substance: ELRANATAMAB-BCMM
     Dates: start: 202411
  2. ELREXFIO [Suspect]
     Active Substance: ELRANATAMAB-BCMM
     Dates: end: 202411

REACTIONS (5)
  - Thrombocytopenia [Unknown]
  - Renal failure [Unknown]
  - Skin exfoliation [Unknown]
  - Anaemia [Unknown]
  - Neoplasm progression [Unknown]

NARRATIVE: CASE EVENT DATE: 20241101
